FAERS Safety Report 24608564 (Version 1)
Quarter: 2024Q4

REPORT INFORMATION
  Report Type: Spontaneous
  Country: CA (occurrence: CA)
  Receive Date: 20241112
  Receipt Date: 20241112
  Transmission Date: 20250115
  Serious: Yes (Other)
  Sender: LEO PHARM
  Company Number: CA-LEO Pharma-374958

PATIENT
  Age: 90 Year
  Sex: Male

DRUGS (1)
  1. PROTOPIC [Suspect]
     Active Substance: TACROLIMUS
     Indication: Rash
     Dosage: TREATMENT : STOPPED
     Dates: start: 202308

REACTIONS (2)
  - Fall [Recovering/Resolving]
  - Discomfort [Recovering/Resolving]
